FAERS Safety Report 9344222 (Version 2)
Quarter: 2014Q2

REPORT INFORMATION
  Report Type: Report from Study
  Country: CA (occurrence: CA)
  Receive Date: 20130612
  Receipt Date: 20140619
  Transmission Date: 20141212
  Serious: Yes (Other)
  Sender: FDA-Public Use
  Company Number: CA-JNJFOC-20130602520

PATIENT
  Age: 28 Year
  Sex: Female
  Weight: 80.74 kg

DRUGS (2)
  1. REMICADE [Suspect]
     Indication: ANKYLOSING SPONDYLITIS
     Route: 042
     Dates: start: 201105
  2. REMICADE [Suspect]
     Indication: ANKYLOSING SPONDYLITIS
     Route: 042

REACTIONS (5)
  - Fibromyalgia [Unknown]
  - Anxiety disorder [Unknown]
  - Weight increased [Unknown]
  - Vomiting [Unknown]
  - Drug effect decreased [Unknown]
